FAERS Safety Report 8565420-2 (Version None)
Quarter: 2012Q3

REPORT INFORMATION
  Report Type: 
  Country: None (occurrence: None)
  Receive Date: 20120803
  Receipt Date: 20120731
  Transmission Date: 20120928
  Serious: Yes (Other)
  Sender: FDA-Public Use
  Company Number: US-PFIZER INC-2012186646

PATIENT
  Sex: Male

DRUGS (3)
  1. FLUTICASONE PROPIONATE [Concomitant]
     Dosage: UNK
     Route: 045
  2. CELEBREX [Suspect]
     Indication: PAIN
     Dosage: UNK
     Route: 048
  3. FLUTICASONE PROPIONATE [Suspect]
     Indication: BRONCHITIS
     Dosage: 250/50 MCG, 1 PUFF(S) 2X/DAY
     Route: 055
     Dates: start: 20120716

REACTIONS (2)
  - HAEMATOCHEZIA [None]
  - DRUG ADMINISTRATION ERROR [None]
